FAERS Safety Report 9168474 (Version 5)
Quarter: 2013Q3

REPORT INFORMATION
  Report Type: Spontaneous
  Country: US (occurrence: US)
  Receive Date: 20130318
  Receipt Date: 20130710
  Transmission Date: 20140515
  Serious: Yes (Death, Hospitalization, Other)
  Sender: FDA-Public Use
  Company Number: US-UCBSA-080639

PATIENT
  Age: 53 Year
  Sex: Male
  Weight: 66.22 kg

DRUGS (11)
  1. CIMZIA [Suspect]
     Indication: RHEUMATOID ARTHRITIS
     Route: 058
     Dates: start: 20101001, end: 201302
  2. CIMZIA [Suspect]
     Indication: RHEUMATOID ARTHRITIS
  3. SOMA [Concomitant]
     Indication: ARTHRALGIA
     Dosage: 1 TO 2 TABS AS NECESSARY
     Route: 048
     Dates: start: 20130103
  4. VALIUM [Concomitant]
     Route: 048
     Dates: start: 20130103
  5. LEXAPRO [Concomitant]
     Route: 048
     Dates: start: 20120914
  6. PREDNISONE [Concomitant]
     Route: 048
     Dates: start: 20121120
  7. VALACYCLOVIR [Concomitant]
     Dosage: AS NECESSARY
     Dates: start: 20130103
  8. FOCALIN XR [Concomitant]
     Route: 048
     Dates: start: 20130103
  9. PROMETHAZINE HCL [Concomitant]
     Indication: NAUSEA
     Dosage: AS NECESSARY
     Dates: start: 20130207
  10. TAMIFLU [Concomitant]
     Dates: start: 20130207
  11. OXYCODONE [Concomitant]
     Indication: ARTHROPATHY

REACTIONS (7)
  - Influenza [Fatal]
  - Myocardial infarction [Fatal]
  - Respiratory disorder [Unknown]
  - Myalgia [Unknown]
  - Chest pain [Unknown]
  - Asthenia [Unknown]
  - Feeling abnormal [Unknown]
